FAERS Safety Report 17581119 (Version 1)
Quarter: 2020Q1

REPORT INFORMATION
  Report Type: Spontaneous
  Country: US (occurrence: US)
  Receive Date: 20200325
  Receipt Date: 20200325
  Transmission Date: 20200409
  Serious: Yes (Other)
  Sender: FDA-Public Use
  Company Number: US-PFIZER INC-2020122834

PATIENT
  Age: 71 Year
  Sex: Female

DRUGS (13)
  1. NEXIUM [Suspect]
     Active Substance: ESOMEPRAZOLE MAGNESIUM
     Indication: GASTROOESOPHAGEAL REFLUX DISEASE
     Dosage: 40 MG, 2X/DAY
     Dates: start: 2007, end: 2010
  2. PRILOSEC [Suspect]
     Active Substance: OMEPRAZOLE MAGNESIUM
     Indication: GASTROOESOPHAGEAL REFLUX DISEASE
     Dosage: 40 MG, 2X/DAY
     Dates: start: 2009, end: 2016
  3. RANITIDINE. [Concomitant]
     Active Substance: RANITIDINE
     Dosage: UNK
     Dates: start: 2015, end: 20191231
  4. PANTOPRAZOLE [Suspect]
     Active Substance: PANTOPRAZOLE
     Indication: GASTROOESOPHAGEAL REFLUX DISEASE
     Dosage: 40 MG, UNK (TOOK FOR SHORT TIME)
  5. SULFAMETHOXAZOLE [Concomitant]
     Active Substance: SULFAMETHOXAZOLE
     Indication: INFECTION
     Dosage: UNK
     Dates: start: 2014
  6. VITAMIN C [Concomitant]
     Active Substance: ASCORBIC ACID
     Indication: SUPPLEMENTATION THERAPY
     Dosage: UNK
     Dates: start: 2006
  7. PROTONIX [Suspect]
     Active Substance: PANTOPRAZOLE SODIUM
     Indication: GASTROOESOPHAGEAL REFLUX DISEASE
     Dosage: 40 MG, UNK (TOOK FOR SHORT TIME)
  8. FISH OIL [Concomitant]
     Active Substance: FISH OIL
     Indication: SUPPLEMENTATION THERAPY
     Dosage: UNK
     Dates: start: 2006
  9. OMEPRAZOLE. [Suspect]
     Active Substance: OMEPRAZOLE
     Indication: GASTROOESOPHAGEAL REFLUX DISEASE
     Dosage: 40 MG, 2X/DAY
     Dates: start: 2010, end: 2016
  10. ESOMEPRAZOLE. [Suspect]
     Active Substance: ESOMEPRAZOLE MAGNESIUM
     Indication: GASTROOESOPHAGEAL REFLUX DISEASE
     Dosage: 40 MG, 2X/DAY
     Dates: start: 2010
  11. SIMVASTATIN. [Concomitant]
     Active Substance: SIMVASTATIN
     Indication: BLOOD CHOLESTEROL INCREASED
     Dosage: UNK
  12. CEFUROXIME. [Concomitant]
     Active Substance: CEFUROXIME
     Indication: INFECTION
     Dosage: UNK
     Dates: start: 2010, end: 2013
  13. VITAMIN D3 [Concomitant]
     Active Substance: CHOLECALCIFEROL
     Indication: SUPPLEMENTATION THERAPY
     Dosage: UNK
     Dates: start: 2015

REACTIONS (1)
  - Chronic kidney disease [Not Recovered/Not Resolved]

NARRATIVE: CASE EVENT DATE: 201611
